FAERS Safety Report 6895418-1 (Version None)
Quarter: 2010Q3

REPORT INFORMATION
  Report Type: 
  Country: None (occurrence: None)
  Receive Date: 20100730
  Receipt Date: 20100730
  Transmission Date: 20110219
  Serious: Yes (Other)
  Sender: FDA-Public Use
  Company Number: None

PATIENT
  Sex: Female
  Weight: 114.76 kg

DRUGS (15)
  1. ALLI [Suspect]
     Indication: WEIGHT INCREASED
     Dosage: ONE PILL AFTER EACH MEAL PO
     Route: 048
     Dates: start: 20100605, end: 20100607
  2. FOSRENOL [Concomitant]
  3. ELIPHOS [Concomitant]
  4. CARVEDILOL [Concomitant]
  5. AMLODIPINE [Concomitant]
  6. DIOVAN [Concomitant]
  7. GEODON [Concomitant]
  8. LEXAPRO [Concomitant]
  9. TOPRIAMATE [Concomitant]
  10. ISOSORB MONO ER [Concomitant]
  11. CLONAZEPAM [Concomitant]
  12. DIALYVITE [Concomitant]
  13. PROMETRIUM [Concomitant]
  14. TRAZODONE [Concomitant]
  15. FISH OIL [Concomitant]

REACTIONS (11)
  - BLOOD BILIRUBIN INCREASED [None]
  - DIARRHOEA [None]
  - EFFUSION [None]
  - FAECES PALE [None]
  - GALLBLADDER DISORDER [None]
  - HEPATIC ENZYME INCREASED [None]
  - JAUNDICE [None]
  - PRURITUS [None]
  - SCAB [None]
  - SKIN ULCER [None]
  - VOMITING [None]
